FAERS Safety Report 19468329 (Version 1)
Quarter: 2021Q2

REPORT INFORMATION
  Report Type: Spontaneous
  Country: US (occurrence: US)
  Receive Date: 20210628
  Receipt Date: 20210628
  Transmission Date: 20210717
  Serious: No
  Sender: FDA-Public Use
  Company Number: US-INTERCEPT-PM2021001047

PATIENT
  Age: 6 Decade
  Sex: Female

DRUGS (1)
  1. OCALIVA [Suspect]
     Active Substance: OBETICHOLIC ACID
     Indication: PRIMARY BILIARY CHOLANGITIS
     Dosage: UNK
     Route: 048

REACTIONS (3)
  - Liver function test abnormal [Recovering/Resolving]
  - Pruritus [Recovering/Resolving]
  - Blood bilirubin abnormal [Unknown]
